FAERS Safety Report 10458730 (Version 2)
Quarter: 2014Q3

REPORT INFORMATION
  Report Type: Spontaneous
  Country: BR (occurrence: BR)
  Receive Date: 20140917
  Receipt Date: 20140917
  Transmission Date: 20150326
  Serious: Yes (Death, Other)
  Sender: FDA-Public Use
  Company Number: BR-JNJFOC-20140705677

PATIENT
  Age: 76 Year
  Sex: Male

DRUGS (2)
  1. XARELTO [Suspect]
     Active Substance: RIVAROXABAN
     Indication: PRODUCT USED FOR UNKNOWN INDICATION
     Route: 048
     Dates: start: 201401
  2. XARELTO [Suspect]
     Active Substance: RIVAROXABAN
     Indication: PRODUCT USED FOR UNKNOWN INDICATION
     Route: 048
     Dates: start: 201301, end: 201310

REACTIONS (5)
  - Occult blood positive [Recovered/Resolved]
  - Haematocrit decreased [Unknown]
  - Haematocrit decreased [Recovered/Resolved]
  - Renal failure acute [Fatal]
  - Occult blood positive [Not Recovered/Not Resolved]

NARRATIVE: CASE EVENT DATE: 201310
